FAERS Safety Report 14446614 (Version 1)
Quarter: 2018Q1

REPORT INFORMATION
  Report Type: Spontaneous
  Country: US (occurrence: US)
  Receive Date: 20180126
  Receipt Date: 20180126
  Transmission Date: 20180509
  Serious: No
  Sender: FDA-Public Use
  Company Number: US-ABBVIE-17K-163-1939696-00

PATIENT
  Sex: Female

DRUGS (2)
  1. HUMIRA [Suspect]
     Active Substance: ADALIMUMAB
     Indication: HIDRADENITIS
     Route: 058
  2. BENADRYL [Concomitant]
     Active Substance: DIPHENHYDRAMINE HYDROCHLORIDE
     Indication: PRODUCT USED FOR UNKNOWN INDICATION

REACTIONS (14)
  - Stress [Unknown]
  - Abscess [Unknown]
  - Skin odour abnormal [Not Recovered/Not Resolved]
  - Chest wall cyst [Unknown]
  - Incorrect dose administered [Unknown]
  - Pain [Unknown]
  - Pain [Unknown]
  - Fear [Unknown]
  - Wrong technique in product usage process [Unknown]
  - Depressed mood [Unknown]
  - Fungal skin infection [Unknown]
  - Emotional distress [Not Recovered/Not Resolved]
  - Skin mass [Unknown]
  - Hidradenitis [Not Recovered/Not Resolved]

NARRATIVE: CASE EVENT DATE: 20170525
